FAERS Safety Report 4526551-7 (Version None)
Quarter: 2004Q4

REPORT INFORMATION
  Report Type: 
  Country: None (occurrence: None)
  Receive Date: 20041210
  Receipt Date: 20041202
  Transmission Date: 20050328
  Serious: Yes (Death, Life-Threatening, Hospitalization)
  Sender: FDA-Public Use
  Company Number: PERC20040064

PATIENT
  Age: 53 Year
  Sex: Male

DRUGS (2)
  1. PERCOCET [Suspect]
     Indication: BACK PAIN
     Dosage: 4-5 TABS DAILY
     Dates: end: 20030101
  2. ACETAMINOPHEN AND HYDROCODONE BITARTRATE [Suspect]
     Dosage: 4-5 TABS DAILY
     Dates: end: 20030101

REACTIONS (12)
  - ALANINE AMINOTRANSFERASE INCREASED [None]
  - ASPARTATE AMINOTRANSFERASE INCREASED [None]
  - BRAIN OEDEMA [None]
  - ENCEPHALOPATHY [None]
  - HAEMATEMESIS [None]
  - HYPERHIDROSIS [None]
  - HYPOTENSION [None]
  - IMPAIRED DRIVING ABILITY [None]
  - INTENTIONAL MISUSE [None]
  - INTERNATIONAL NORMALISED RATIO INCREASED [None]
  - MENTAL STATUS CHANGES [None]
  - PROTHROMBIN TIME PROLONGED [None]
